FAERS Safety Report 7608948-1 (Version None)
Quarter: 2011Q3

REPORT INFORMATION
  Report Type: 
  Country: None (occurrence: None)
  Receive Date: 20110714
  Receipt Date: 20110707
  Transmission Date: 20111222
  Serious: Yes (Death)
  Sender: FDA-Public Use
  Company Number: US-GLAXOSMITHKLINE-A0936547A

PATIENT
  Age: 82 Year
  Sex: Male

DRUGS (1)
  1. REQUIP XL [Suspect]
     Dosage: 4MG UNKNOWN
     Route: 065
     Dates: start: 20090725, end: 20110517

REACTIONS (1)
  - NEOPLASM MALIGNANT [None]
